FAERS Safety Report 21422804 (Version 1)
Quarter: 2022Q4

REPORT INFORMATION
  Report Type: Spontaneous
  Country: US (occurrence: US)
  Receive Date: 20221007
  Receipt Date: 20221007
  Transmission Date: 20230113
  Serious: No
  Sender: FDA-Public Use
  Company Number: US-TARO PHARMACEUTICALS USA INC.-2021TAR01286

PATIENT
  Age: 11 Year
  Sex: Male

DRUGS (1)
  1. LORATADINE [Suspect]
     Active Substance: LORATADINE
     Indication: Cough
     Dosage: UNK UNK, BID, GAVE A ^SPOON AND HALF^ TWICE YESTERDAY
     Route: 048
     Dates: start: 20211213

REACTIONS (7)
  - Product use issue [Unknown]
  - Overdose [Unknown]
  - Vomiting [Not Recovered/Not Resolved]
  - Somnolence [Not Recovered/Not Resolved]
  - Abdominal discomfort [Not Recovered/Not Resolved]
  - Pyrexia [Not Recovered/Not Resolved]
  - Pica [Not Recovered/Not Resolved]

NARRATIVE: CASE EVENT DATE: 20211214
